FAERS Safety Report 12630803 (Version 2)
Quarter: 2016Q4

REPORT INFORMATION
  Report Type: Spontaneous
  Country: US (occurrence: US)
  Receive Date: 20160808
  Receipt Date: 20161102
  Transmission Date: 20170207
  Serious: No
  Sender: FDA-Public Use
  Company Number: US-PFIZER INC-2016358917

PATIENT
  Age: 59 Year
  Sex: Female
  Weight: 61 kg

DRUGS (4)
  1. TYLENOL [Suspect]
     Active Substance: ACETAMINOPHEN
     Indication: PYREXIA
     Dosage: 500 MG, AS NEEDED
  2. ADVIL [Suspect]
     Active Substance: IBUPROFEN
     Indication: PYREXIA
     Dosage: 200 MG, AS NEEDED (TWICE A DAY)
  3. TYLENOL [Suspect]
     Active Substance: ACETAMINOPHEN
     Indication: TINNITUS
  4. ADVIL [Suspect]
     Active Substance: IBUPROFEN
     Indication: HEADACHE

REACTIONS (2)
  - Condition aggravated [Recovered/Resolved]
  - Pyrexia [Recovered/Resolved]
